FAERS Safety Report 15966196 (Version 3)
Quarter: 2019Q1

REPORT INFORMATION
  Report Type: Spontaneous
  Country: US (occurrence: US)
  Receive Date: 20190215
  Receipt Date: 20190228
  Transmission Date: 20190418
  Serious: No
  Sender: FDA-Public Use
  Company Number: PHEH2019US006813

PATIENT
  Sex: Female

DRUGS (1)
  1. TYKERB [Suspect]
     Active Substance: LAPATINIB DITOSYLATE
     Indication: BREAST CANCER FEMALE
     Dosage: 5 DF (1250 MG), QD
     Route: 048
     Dates: start: 20190129

REACTIONS (3)
  - Epistaxis [Unknown]
  - Skin fissures [Unknown]
  - Skin haemorrhage [Unknown]
